FAERS Safety Report 19442137 (Version 1)
Quarter: 2021Q2

REPORT INFORMATION
  Report Type: Spontaneous
  Country: US (occurrence: US)
  Receive Date: 20210618
  Receipt Date: 20210618
  Transmission Date: 20210717
  Serious: Yes (Other)
  Sender: FDA-Public Use
  Company Number: None

PATIENT
  Age: 29 Year
  Sex: Male
  Weight: 81.5 kg

DRUGS (2)
  1. (HEPARIN SODIUM) PREMIXED BAG [Suspect]
     Active Substance: HEPARIN SODIUM
     Indication: THROMBOSIS
     Dosage: ?          OTHER FREQUENCY:UNITS/KG/HR;?
     Route: 041
     Dates: start: 20210523, end: 20210603
  2. (HEPARIN SODIUM) PREMIXED BAG [Suspect]
     Active Substance: HEPARIN SODIUM
     Indication: ATRIAL FIBRILLATION
     Dosage: ?          OTHER FREQUENCY:UNITS/KG/HR;?
     Route: 041
     Dates: start: 20210523, end: 20210603

REACTIONS (3)
  - Jugular vein thrombosis [None]
  - Drug level below therapeutic [None]
  - Vena cava thrombosis [None]

NARRATIVE: CASE EVENT DATE: 20210603
